FAERS Safety Report 24813059 (Version 4)
Quarter: 2025Q1

REPORT INFORMATION
  Report Type: Spontaneous
  Country: US (occurrence: US)
  Receive Date: 20250107
  Receipt Date: 20250109
  Transmission Date: 20250409
  Serious: Yes (Other)
  Sender: ROCHE
  Company Number: US-ROCHE-10000173305

PATIENT
  Sex: Female
  Weight: 50.8 kg

DRUGS (4)
  1. XOLAIR PFS [Suspect]
     Active Substance: OMALIZUMAB
     Indication: Urticaria
     Dosage: EVERY 4 WEEK
     Route: 058
     Dates: start: 202412
  2. XOLAIR PFS [Suspect]
     Active Substance: OMALIZUMAB
     Indication: Urticaria chronic
     Dosage: EVERY 4 WEEK
     Route: 058
     Dates: start: 202412
  3. XOLAIR PFS [Suspect]
     Active Substance: OMALIZUMAB
     Dosage: EVERY 4 WEEK
     Route: 058
     Dates: start: 20220511
  4. XOLAIR PFS [Suspect]
     Active Substance: OMALIZUMAB
     Dosage: EVERY 4 WEEK
     Route: 058
     Dates: start: 2018

REACTIONS (5)
  - Asthma [Unknown]
  - Anaphylactic reaction [Unknown]
  - Off label use [Unknown]
  - Urticaria [Unknown]
  - Condition aggravated [Recovered/Resolved]
